FAERS Safety Report 25002017 (Version 1)
Quarter: 2025Q1

REPORT INFORMATION
  Report Type: Spontaneous
  Country: US (occurrence: US)
  Receive Date: 20250224
  Receipt Date: 20250224
  Transmission Date: 20250409
  Serious: Yes (Other)
  Sender: LUPIN
  Company Number: US-LUPIN PHARMACEUTICALS INC.-2025-01529

PATIENT
  Age: 44 Year
  Sex: Male

DRUGS (21)
  1. RIFAMPIN [Suspect]
     Active Substance: RIFAMPIN
     Indication: Bone tuberculosis
     Route: 065
  2. RIFAMPIN [Suspect]
     Active Substance: RIFAMPIN
     Indication: Pulmonary tuberculosis
  3. RIFAMPIN [Suspect]
     Active Substance: RIFAMPIN
     Indication: Joint tuberculosis
  4. ETHAMBUTOL [Suspect]
     Active Substance: ETHAMBUTOL HYDROCHLORIDE
     Indication: Bone tuberculosis
     Route: 065
  5. ETHAMBUTOL [Suspect]
     Active Substance: ETHAMBUTOL HYDROCHLORIDE
     Indication: Pulmonary tuberculosis
  6. ETHAMBUTOL [Suspect]
     Active Substance: ETHAMBUTOL HYDROCHLORIDE
     Indication: Joint tuberculosis
  7. ETHAMBUTOL [Suspect]
     Active Substance: ETHAMBUTOL HYDROCHLORIDE
     Indication: Tuberculosis
  8. RIFABUTIN [Suspect]
     Active Substance: RIFABUTIN
     Indication: Pulmonary tuberculosis
     Dosage: 150 MILLIGRAM, QD
     Route: 065
  9. RIFABUTIN [Suspect]
     Active Substance: RIFABUTIN
     Indication: Joint tuberculosis
     Route: 065
  10. RIFABUTIN [Suspect]
     Active Substance: RIFABUTIN
     Indication: Bone tuberculosis
     Dosage: 450 MILLIGRAM, QD
     Route: 065
  11. RIFABUTIN [Suspect]
     Active Substance: RIFABUTIN
     Indication: Tuberculosis
  12. LEVOFLOXACIN [Suspect]
     Active Substance: LEVOFLOXACIN
     Indication: Pulmonary tuberculosis
     Route: 065
  13. ISONIAZID [Suspect]
     Active Substance: ISONIAZID
     Indication: Pulmonary tuberculosis
     Route: 065
  14. ISONIAZID [Suspect]
     Active Substance: ISONIAZID
     Indication: Bone tuberculosis
  15. ISONIAZID [Suspect]
     Active Substance: ISONIAZID
     Indication: Joint tuberculosis
  16. ISONIAZID [Suspect]
     Active Substance: ISONIAZID
     Indication: Tuberculosis
  17. PYRAZINAMIDE [Suspect]
     Active Substance: PYRAZINAMIDE
     Indication: Pulmonary tuberculosis
     Route: 065
  18. PYRAZINAMIDE [Suspect]
     Active Substance: PYRAZINAMIDE
     Indication: Joint tuberculosis
  19. PYRAZINAMIDE [Suspect]
     Active Substance: PYRAZINAMIDE
     Indication: Bone tuberculosis
  20. PYRAZINAMIDE [Suspect]
     Active Substance: PYRAZINAMIDE
     Indication: Tuberculosis
  21. ETHIONAMIDE [Concomitant]
     Active Substance: ETHIONAMIDE
     Indication: Pulmonary tuberculosis
     Route: 065

REACTIONS (3)
  - Treatment failure [Unknown]
  - Drug resistance [Unknown]
  - Off label use [Unknown]
